FAERS Safety Report 5324884-8 (Version None)
Quarter: 2007Q2

REPORT INFORMATION
  Report Type: 
  Country: None (occurrence: None)
  Receive Date: 20070509
  Receipt Date: 20070430
  Transmission Date: 20071010
  Serious: Yes (Other)
  Sender: FDA-Public Use
  Company Number: US019923

PATIENT
  Age: 16 Year
  Sex: Female

DRUGS (2)
  1. PROVIGIL [Suspect]
     Indication: CATAPLEXY
     Dosage: 100 MG BID ORAL
     Route: 048
     Dates: start: 20061001
  2. PROVIGIL [Suspect]
     Indication: NARCOLEPSY
     Dosage: 100 MG BID ORAL
     Route: 048
     Dates: start: 20061001

REACTIONS (6)
  - GRAND MAL CONVULSION [None]
  - MENTAL STATUS CHANGES [None]
  - MYOCLONIC EPILEPSY [None]
  - POOR QUALITY SLEEP [None]
  - SOMNOLENCE [None]
  - STARING [None]
